FAERS Safety Report 5802678-4 (Version None)
Quarter: 2008Q3

REPORT INFORMATION
  Report Type: 
  Country: None (occurrence: None)
  Receive Date: 20080708
  Receipt Date: 20080626
  Transmission Date: 20090109
  Serious: Yes (Other)
  Sender: FDA-Public Use
  Company Number: GB-BAYER-200811066BNE

PATIENT
  Age: 38 Year
  Sex: Male

DRUGS (4)
  1. SORAFENIB [Suspect]
     Indication: RENAL CANCER
     Route: 048
     Dates: start: 20071024, end: 20080417
  2. SORAFENIB [Suspect]
     Route: 048
     Dates: start: 20071024, end: 20080222
  3. SORAFENIB [Suspect]
     Dates: start: 20071025, end: 20080318
  4. SORAFENIB [Suspect]
     Dates: start: 20080318

REACTIONS (2)
  - CHEST X-RAY ABNORMAL [None]
  - LOWER RESPIRATORY TRACT INFECTION [None]
